FAERS Safety Report 8327637-1 (Version None)
Quarter: 2012Q2

REPORT INFORMATION
  Report Type: 
  Country: None (occurrence: None)
  Receive Date: 20120502
  Receipt Date: 20120424
  Transmission Date: 20120825
  Serious: Yes (Hospitalization, Other)
  Sender: FDA-Public Use
  Company Number: US-BAYER-201039766NA

PATIENT
  Age: 34 Year
  Sex: Female
  Weight: 42.63 kg

DRUGS (20)
  1. ZITHROMAX [Concomitant]
     Indication: PNEUMONIA
     Dosage: 500 MG, UNK
     Route: 048
     Dates: start: 20090415
  2. TORADOL [Concomitant]
     Dosage: 60 MG, UNK
     Route: 030
     Dates: start: 20090415
  3. NORCO [Concomitant]
     Dosage: UNK
     Route: 048
     Dates: start: 20090416
  4. GUAIFENESIN AND PSEUDOEPHEDRINE HYDROCHLORIDE [Concomitant]
  5. CIPROFLOXACIN HCL [Concomitant]
     Indication: PNEUMONIA
     Dosage: 500 MG, UNK
     Route: 048
     Dates: start: 20090415
  6. LODINE [Concomitant]
     Dosage: 300 MG, UNK
     Route: 048
     Dates: start: 20090415
  7. AXERT [Concomitant]
     Dosage: 12.5 MG, UNK
     Route: 048
     Dates: start: 20090101
  8. YAZ [Suspect]
     Indication: CONTRACEPTION
     Dosage: UNK UNK, QD
     Route: 048
     Dates: start: 20090304, end: 20090428
  9. LOVENOX [Concomitant]
     Dosage: UNK
     Dates: start: 20090501
  10. ROCEPHIN [Concomitant]
     Indication: PNEUMONIA
     Dosage: UNK
     Route: 042
     Dates: start: 20090415, end: 20090415
  11. VICODIN [Concomitant]
     Indication: PAIN
     Dosage: 500 UNK, UNK
     Route: 048
     Dates: start: 20090416
  12. ANTI-ASTHMATICS [Concomitant]
  13. IMITREX [Concomitant]
     Dosage: 50 MG, UNK
     Route: 048
     Dates: start: 20090101
  14. GUAIFENESIN [Concomitant]
     Indication: PNEUMONIA
     Dosage: UNK UNK, BID
     Dates: start: 20090415
  15. LEVAQUIN [Concomitant]
     Indication: PNEUMONIA
     Dosage: 750 MG, UNK
     Route: 048
     Dates: start: 20090416
  16. ANTITHROMBOTIC AGENTS [Concomitant]
  17. LORTAB [Concomitant]
  18. COUMADIN [Concomitant]
     Dosage: 5 MG, QD
     Dates: start: 20090501
  19. COUMADIN [Concomitant]
     Dosage: 6 UNK, UNK
     Dates: start: 20090701
  20. LEXAPRO [Concomitant]
     Dosage: 10 MG, QD
     Dates: start: 20090701

REACTIONS (4)
  - PAIN [None]
  - PULMONARY EMBOLISM [None]
  - DEPRESSION [None]
  - WEIGHT DECREASED [None]
